FAERS Safety Report 9363891 (Version 1)
Quarter: 2013Q2

REPORT INFORMATION
  Report Type: Spontaneous
  Country: US (occurrence: US)
  Receive Date: 20130624
  Receipt Date: 20130624
  Transmission Date: 20140414
  Serious: Yes (Other)
  Sender: FDA-Public Use
  Company Number: US-SANOFI-AVENTIS-2013SA062066

PATIENT
  Age: 74 Year
  Sex: Female

DRUGS (4)
  1. MULTAQ [Suspect]
     Indication: TACHYCARDIA
     Dosage: 1/2 OF A TABLET AT NIGHT, AND 1/2 TABLET IN THE MORNING
     Route: 048
  2. MULTAQ [Suspect]
     Indication: TACHYCARDIA
     Route: 048
  3. SIMVASTATIN [Concomitant]
     Indication: BLOOD CHOLESTEROL
     Dosage: 1/2 OF A 40 MG TABLET
  4. PENTOXIFYLLINE [Concomitant]
     Indication: POST POLIO SYNDROME

REACTIONS (7)
  - Chest pain [Not Recovered/Not Resolved]
  - Sleep apnoea syndrome [Not Recovered/Not Resolved]
  - Dyspnoea [Not Recovered/Not Resolved]
  - Local swelling [Not Recovered/Not Resolved]
  - Cyanosis [Not Recovered/Not Resolved]
  - Adverse drug reaction [Unknown]
  - Wrong technique in drug usage process [Unknown]
